FAERS Safety Report 5900026-2 (Version None)
Quarter: 2008Q3

REPORT INFORMATION
  Report Type: 
  Country: None (occurrence: None)
  Receive Date: 20080925
  Receipt Date: 20080925
  Transmission Date: 20090109
  Serious: No
  Sender: FDA-Public Use
  Company Number: None

PATIENT
  Age: 54 Year
  Sex: Female
  Weight: 68.9467 kg

DRUGS (1)
  1. RECLAST [Suspect]
     Indication: OSTEOPOROSIS
     Dosage: 5MG ONCE IV
     Route: 042
     Dates: start: 20080917, end: 20080928

REACTIONS (4)
  - ADVERSE DRUG REACTION [None]
  - ARTHRALGIA [None]
  - INADEQUATE ANALGESIA [None]
  - MUSCLE SPASMS [None]
